FAERS Safety Report 21389663 (Version 1)
Quarter: 2022Q3

REPORT INFORMATION
  Report Type: Spontaneous
  Country: CA (occurrence: CA)
  Receive Date: 20220929
  Receipt Date: 20220929
  Transmission Date: 20221027
  Serious: Yes (Hospitalization, Other)
  Sender: FDA-Public Use
  Company Number: CA-TEVA-2022-CA-2076360

PATIENT
  Age: 70 Year
  Sex: Male

DRUGS (1)
  1. FLUTICASONE PROPIONATE [Suspect]
     Active Substance: FLUTICASONE PROPIONATE
     Indication: Asthma
     Route: 055

REACTIONS (14)
  - Cough [Unknown]
  - Dyspnoea [Unknown]
  - Emphysema [Unknown]
  - Fatigue [Unknown]
  - Gingival disorder [Unknown]
  - Gingival pain [Unknown]
  - Implant site pain [Unknown]
  - Lung disorder [Unknown]
  - Memory impairment [Unknown]
  - Respiratory disorder [Unknown]
  - Respiratory tract irritation [Unknown]
  - Splenic thrombosis [Unknown]
  - Throat irritation [Unknown]
  - Drug ineffective [Unknown]
